FAERS Safety Report 7457994-X (Version None)
Quarter: 2011Q1

REPORT INFORMATION
  Report Type: 
  Country: None (occurrence: None)
  Receive Date: 20110302
  Receipt Date: 20100709
  Transmission Date: 20110831
  Serious: Yes (Death)
  Sender: FDA-Public Use
  Company Number: 163-21880-10062042

PATIENT
  Age: 73 Year
  Sex: Female

DRUGS (1)
  1. REVLIMID [Suspect]
     Indication: MULTIPLE MYELOMA
     Dosage: 10 MG, DAYS 1-21, PO
     Route: 048
     Dates: start: 20090901, end: 20100208

REACTIONS (2)
  - NEOPLASM PROGRESSION [None]
  - MULTIPLE MYELOMA [None]
